FAERS Safety Report 5737750-0 (Version None)
Quarter: 2008Q2

REPORT INFORMATION
  Report Type: 
  Country: None (occurrence: None)
  Receive Date: 20080514
  Receipt Date: 20080505
  Transmission Date: 20081010
  Serious: Yes (Hospitalization)
  Sender: FDA-Public Use
  Company Number: GB-ROCHE-562560

PATIENT
  Sex: Male
  Weight: 110 kg

DRUGS (7)
  1. XELODA [Suspect]
     Dosage: GIVEN ON DAYS 1-14 OF EACH CYCLE.
     Route: 048
     Dates: start: 20080122, end: 20080307
  2. CETUXIMAB [Suspect]
     Route: 042
     Dates: start: 20080122, end: 20080122
  3. CETUXIMAB [Suspect]
     Dosage: DELAYED.
     Route: 042
     Dates: end: 20080225
  4. CETUXIMAB [Suspect]
     Route: 042
     Dates: end: 20080314
  5. OXALIPLATIN [Suspect]
     Dosage: GIVEN ON DAY ONE OF EACH CYCLE.
     Route: 042
     Dates: start: 20080122, end: 20080307
  6. DEXAMETHASONE [Concomitant]
     Dates: start: 20080225, end: 20080303
  7. LANSOPRAZOLE [Concomitant]
     Dates: start: 20080225

REACTIONS (1)
  - CEREBRAL VENOUS THROMBOSIS [None]
